FAERS Safety Report 7093490-X (Version None)
Quarter: 2010Q4

REPORT INFORMATION
  Report Type: 
  Country: None (occurrence: None)
  Receive Date: 20101110
  Receipt Date: 20090624
  Transmission Date: 20110411
  Serious: No
  Sender: FDA-Public Use
  Company Number: US-KINGPHARMUSA00001-K200900761

PATIENT

DRUGS (1)
  1. EPIPEN JR. [Suspect]
     Indication: HYPERSENSITIVITY
     Dosage: 0.15 MG, SINGLE
     Route: 030

REACTIONS (1)
  - INJECTION SITE PAIN [None]
